FAERS Safety Report 5415718-1 (Version None)
Quarter: 2007Q3

REPORT INFORMATION
  Report Type: 
  Country: None (occurrence: None)
  Receive Date: 20070718
  Receipt Date: 20070116
  Transmission Date: 20080115
  Serious: Yes (Hospitalization, Other)
  Sender: FDA-Public Use
  Company Number: 2007005095

PATIENT
  Age: 68 Year
  Sex: Female
  Weight: 55.3 kg

DRUGS (9)
  1. CELEBREX [Suspect]
     Indication: ARTHRITIS
     Dosage: 200 MG, ORAL
     Route: 048
  2. DIPHENHYDRAMINE HCL [Suspect]
     Indication: MULTIPLE ALLERGIES
     Dosage: 25 MG (25 MG, 1 IN 1), ORAL
     Route: 048
  3. LIPITOR [Concomitant]
  4. WARFARIN SODIIUM (WARFARIN SODIUM) [Concomitant]
  5. DIGOXIN [Concomitant]
  6. OPHTHALMOLOGICALS (OPHTHALMOLOGICALS) [Concomitant]
  7. GLUCOSAMINE (GLUCOSAMINE) [Concomitant]
  8. TYLENOL PM (DIPHENHYDRAMINE, PARACETAMOL) [Concomitant]
  9. ACTONEL [Concomitant]

REACTIONS (4)
  - BLOOD AMYLASE INCREASED [None]
  - FALL [None]
  - LIPASE INCREASED [None]
  - TIBIA FRACTURE [None]
